FAERS Safety Report 22244215 (Version 1)
Quarter: 2023Q2

REPORT INFORMATION
  Report Type: Spontaneous
  Country: US (occurrence: None)
  Receive Date: 20230419
  Receipt Date: 20230419
  Transmission Date: 20230721
  Serious: Yes (Other)
  Sender: FDA-Public Use
  Company Number: None

PATIENT
  Sex: Female

DRUGS (1)
  1. LEUPROLIDE [Suspect]
     Active Substance: LEUPROLIDE
     Indication: Infertility female
     Dosage: OTHER QUANTITY : 1MG/0.2ML ;?FREQUENCY : TWICE A DAY;?
     Route: 058
     Dates: start: 20230417, end: 20230419

REACTIONS (1)
  - Product dispensing error [None]
